FAERS Safety Report 16529840 (Version 2)
Quarter: 2019Q3

REPORT INFORMATION
  Report Type: Spontaneous
  Country: GB (occurrence: GB)
  Receive Date: 20190704
  Receipt Date: 20190802
  Transmission Date: 20191004
  Serious: Yes (Death, Congenital Anomaly)
  Sender: FDA-Public Use
  Company Number: GB-AUROBINDO-AUR-APL-2019-037068

PATIENT

DRUGS (4)
  1. LEVETIRACETAM. [Suspect]
     Active Substance: LEVETIRACETAM
     Dosage: UNK
     Route: 064
     Dates: start: 2011, end: 2012
  2. LEVETIRACETAM. [Suspect]
     Active Substance: LEVETIRACETAM
     Indication: EPILEPSY
     Dosage: 2000 MILLIGRAM, DAILY
     Route: 064
     Dates: start: 2011, end: 2011
  3. LAMOTRIGINE. [Suspect]
     Active Substance: LAMOTRIGINE
     Dosage: UNK
     Route: 064
     Dates: start: 2011, end: 2012
  4. LAMOTRIGINE. [Suspect]
     Active Substance: LAMOTRIGINE
     Indication: EPILEPSY
     Dosage: UNKNOWN DOSE
     Route: 064
     Dates: start: 2011, end: 2011

REACTIONS (2)
  - Foetal exposure during pregnancy [Recovered/Resolved]
  - Trisomy 18 [Fatal]

NARRATIVE: CASE EVENT DATE: 2011
